FAERS Safety Report 4608587-0 (Version None)
Quarter: 2005Q1

REPORT INFORMATION
  Report Type: 
  Country: None (occurrence: None)
  Receive Date: 20050315
  Receipt Date: 20050307
  Transmission Date: 20050727
  Serious: Yes (Hospitalization)
  Sender: FDA-Public Use
  Company Number: US-JNJFOC-20050301908

PATIENT
  Sex: Female

DRUGS (2)
  1. DURAGESIC-100 [Suspect]
     Route: 062
     Dates: start: 19990101
  2. DURAGESIC-100 [Suspect]
     Route: 062
     Dates: start: 19990101

REACTIONS (3)
  - HYPERSOMNIA [None]
  - MYOCARDIAL INFARCTION [None]
  - VOMITING [None]
